FAERS Safety Report 15710068 (Version 1)
Quarter: 2018Q4

REPORT INFORMATION
  Report Type: Spontaneous
  Country: FR (occurrence: FR)
  Receive Date: 20181211
  Receipt Date: 20181211
  Transmission Date: 20190205
  Serious: Yes (Hospitalization, Other)
  Sender: FDA-Public Use
  Company Number: FR-BRISTOL-MYERS SQUIBB COMPANY-15495369

PATIENT
  Age: 79 Year
  Sex: Female

DRUGS (7)
  1. XANAX [Concomitant]
     Active Substance: ALPRAZOLAM
     Indication: PRODUCT USED FOR UNKNOWN INDICATION
     Dosage: 1DF=0.25 UNITS NOT SPECIFIED, 1 TABLET /DAY
     Route: 065
     Dates: start: 201011
  2. ZYLORIC [Interacting]
     Active Substance: ALLOPURINOL
     Indication: PRODUCT USED FOR UNKNOWN INDICATION
     Dosage: 100 MG, QD, 1 TABLET/MORNING
     Route: 048
  3. LEXOMIL [Concomitant]
     Active Substance: BROMAZEPAM
     Indication: PRODUCT USED FOR UNKNOWN INDICATION
     Dosage: 1DF=0.25 UNITS NOT SPECIFIED, 3/4 TABLETS AT NIGHT
     Route: 065
     Dates: start: 201011
  4. STABLON [Concomitant]
     Active Substance: TIANEPTINE
     Indication: PRODUCT USED FOR UNKNOWN INDICATION
     Dosage: 1DF= 3/DAY, MORNING AND EVENING
     Route: 065
     Dates: start: 201011
  5. OXYGEN. [Concomitant]
     Active Substance: OXYGEN
     Indication: PRODUCT USED FOR UNKNOWN INDICATION
     Dosage: DOSE 15 HOUR/DAY
     Route: 065
  6. COUMADIN [Suspect]
     Active Substance: WARFARIN SODIUM
     Indication: PRODUCT USED FOR UNKNOWN INDICATION
     Dosage: 2 MG, BID
     Route: 048
  7. KALEORID [Concomitant]
     Active Substance: POTASSIUM CHLORIDE
     Indication: PRODUCT USED FOR UNKNOWN INDICATION
     Dosage: 1 TABLET IN MORNING 3-4/WEEK
     Route: 065
     Dates: start: 201011

REACTIONS (13)
  - Right ventricular failure [Unknown]
  - Pulmonary embolism [Unknown]
  - International normalised ratio increased [Recovered/Resolved]
  - Blood creatine phosphokinase increased [Unknown]
  - Deep vein thrombosis [Unknown]
  - Fall [Unknown]
  - Headache [Unknown]
  - Oedema peripheral [Unknown]
  - Hilar lymphadenopathy [Unknown]
  - Renal failure [Unknown]
  - Drug interaction [Unknown]
  - Dyspnoea exertional [Unknown]
  - Brain natriuretic peptide increased [Unknown]

NARRATIVE: CASE EVENT DATE: 201011
